FAERS Safety Report 13962242 (Version 1)
Quarter: 2017Q3

REPORT INFORMATION
  Report Type: Spontaneous
  Country: BR (occurrence: BR)
  Receive Date: 20170912
  Receipt Date: 20170912
  Transmission Date: 20171128
  Serious: Yes (Other)
  Sender: FDA-Public Use
  Company Number: BR-ABBVIE-17P-020-2098843-00

PATIENT
  Age: 35 Year
  Sex: Female
  Weight: 82 kg

DRUGS (2)
  1. CARBOLITHIUM 300MG [Concomitant]
     Active Substance: LITHIUM CARBONATE
     Indication: DEPRESSION
     Dosage: DAILY DOSE 2 TABLET; AT 7AM AND 7PM
     Route: 048
     Dates: start: 20151002
  2. DEPAKOTE [Suspect]
     Active Substance: DIVALPROEX SODIUM
     Indication: DEPRESSION
     Dosage: DAILY DOSE: 2 TABLET; AT 10PM
     Route: 048
     Dates: start: 201510

REACTIONS (14)
  - Decreased appetite [Not Recovered/Not Resolved]
  - Depression [Recovered/Resolved]
  - Product use in unapproved indication [Unknown]
  - Depression [Not Recovered/Not Resolved]
  - Abdominal pain upper [Unknown]
  - Insomnia [Not Recovered/Not Resolved]
  - Feeling abnormal [Unknown]
  - Suicidal ideation [Unknown]
  - Anxiety [Unknown]
  - Off label use [Unknown]
  - Therapy cessation [Recovered/Resolved]
  - Drug administration error [Unknown]
  - Crying [Unknown]
  - Weight increased [Not Recovered/Not Resolved]

NARRATIVE: CASE EVENT DATE: 201510
